FAERS Safety Report 5030737-5 (Version None)
Quarter: 2006Q2

REPORT INFORMATION
  Report Type: 
  Country: None (occurrence: None)
  Receive Date: 20060615
  Receipt Date: 20060607
  Transmission Date: 20061013
  Serious: Yes (Other)
  Sender: FDA-Public Use
  Company Number: 2006072837

PATIENT
  Age: 31 Year
  Sex: Female
  Weight: 90.7194 kg

DRUGS (1)
  1. ZOLOFT [Suspect]
     Indication: ANXIETY
     Dosage: 100 MG (100 MG, 1 IN 1 D)
     Dates: start: 20060603, end: 20060605

REACTIONS (20)
  - ANXIETY [None]
  - ASTHENIA [None]
  - BLOOD PRESSURE INCREASED [None]
  - DEHYDRATION [None]
  - DIARRHOEA [None]
  - DISSOCIATION [None]
  - DIZZINESS [None]
  - FEAR [None]
  - FEELING COLD [None]
  - HEART RATE INCREASED [None]
  - HYPOAESTHESIA [None]
  - ILL-DEFINED DISORDER [None]
  - MALAISE [None]
  - NAUSEA [None]
  - NERVOUSNESS [None]
  - STOMACH DISCOMFORT [None]
  - THINKING ABNORMAL [None]
  - THIRST [None]
  - VISION BLURRED [None]
  - VOMITING [None]
